FAERS Safety Report 23867243 (Version 1)
Quarter: 2024Q2

REPORT INFORMATION
  Report Type: Other
  Country: US (occurrence: US)
  Receive Date: 20240517
  Receipt Date: 20240517
  Transmission Date: 20240716
  Serious: Yes (Hospitalization, Other)
  Sender: FDA-Public Use
  Company Number: US-Innogenix, LLC-2157127

PATIENT
  Age: 47 Year
  Sex: Male

DRUGS (3)
  1. PROPRANOLOL HYDROCHLORIDE [Suspect]
     Active Substance: PROPRANOLOL HYDROCHLORIDE
     Indication: Cardiac failure high output
     Route: 042
  2. METHIMAZOLE [Concomitant]
     Active Substance: METHIMAZOLE
     Route: 065
  3. HYDROCORTISONE [Concomitant]
     Active Substance: HYDROCORTISONE
     Route: 065

REACTIONS (3)
  - Pulseless electrical activity [Unknown]
  - Product use in unapproved indication [Unknown]
  - Cardiac arrest [Unknown]
